FAERS Safety Report 10096410 (Version 2)
Quarter: 2014Q2

REPORT INFORMATION
  Report Type: Spontaneous
  Country: US (occurrence: US)
  Receive Date: 20140422
  Receipt Date: 20140528
  Transmission Date: 20141212
  Serious: Yes (Other)
  Sender: FDA-Public Use
  Company Number: US-FRI-1000066494

PATIENT
  Age: 78 Year
  Sex: Female

DRUGS (2)
  1. ARMOUR THYROID [Suspect]
     Indication: HYPOTHYROIDISM
     Dosage: 60MG
     Route: 048
  2. MULTIVITAMINS (NOS) [Concomitant]

REACTIONS (6)
  - Hip arthroplasty [Recovered/Resolved]
  - Lyme disease [Recovered/Resolved]
  - Dizziness [Recovered/Resolved]
  - Feeling abnormal [Recovered/Resolved]
  - Fatigue [Recovered/Resolved]
  - Arthritis [Not Recovered/Not Resolved]
